FAERS Safety Report 14623543 (Version 1)
Quarter: 2018Q1

REPORT INFORMATION
  Report Type: Spontaneous
  Country: ES (occurrence: ES)
  Receive Date: 20180312
  Receipt Date: 20180312
  Transmission Date: 20180509
  Serious: Yes (Hospitalization, Other)
  Sender: FDA-Public Use
  Company Number: ES-AUROBINDO-AUR-APL-2018-012478

PATIENT
  Age: 44 Year
  Sex: Male

DRUGS (7)
  1. PAROXETINE FILM-COATED TABLET [Suspect]
     Active Substance: PAROXETINE
     Indication: SCHIZOPHRENIA
     Dosage: 20 MILLIGRAM
     Route: 065
     Dates: start: 20121001
  2. XEPLION [Suspect]
     Active Substance: PALIPERIDONE PALMITATE
     Indication: SCHIZOPHRENIA
     Dosage: 100 MG, QMO
     Route: 058
     Dates: start: 20121001
  3. RISPERIDONE FILM-COATED TABLETS [Suspect]
     Active Substance: RISPERIDONE
     Indication: SCHIZOPHRENIA
     Dosage: 50 MG, QMO
     Route: 030
     Dates: start: 20100101
  4. PALIPERIDONE PALMITATE [Suspect]
     Active Substance: PALIPERIDONE PALMITATE
     Indication: SCHIZOPHRENIA
     Dosage: 100 MG, QMO
     Route: 058
     Dates: start: 20121001
  5. SEROXAT [Suspect]
     Active Substance: PAROXETINE HYDROCHLORIDE
     Indication: SCHIZOPHRENIA
     Dosage: 20 MG,
     Route: 065
     Dates: start: 20121001
  6. RISPERDAL [Suspect]
     Active Substance: RISPERIDONE
     Indication: SCHIZOPHRENIA
     Dosage: 50 MG, QMO
     Route: 030
     Dates: start: 20100101
  7. ABILIFY [Suspect]
     Active Substance: ARIPIPRAZOLE
     Indication: SCHIZOPHRENIA
     Dosage: 5 MG, UNK
     Route: 048
     Dates: start: 20121001

REACTIONS (3)
  - Asthma [Not Recovered/Not Resolved]
  - Libido decreased [Not Recovered/Not Resolved]
  - Constipation [Not Recovered/Not Resolved]

NARRATIVE: CASE EVENT DATE: 20120101
